FAERS Safety Report 5988497-7 (Version None)
Quarter: 2008Q4

REPORT INFORMATION
  Report Type: 
  Country: None (occurrence: None)
  Receive Date: 20081208
  Receipt Date: 20081208
  Transmission Date: 20090506
  Serious: Yes (Life-Threatening)
  Sender: FDA-Public Use
  Company Number: None

PATIENT
  Age: 53 Year
  Sex: Female

DRUGS (1)
  1. AVELOX [Suspect]
     Indication: SINUSITIS

REACTIONS (7)
  - ANAPHYLACTIC REACTION [None]
  - BLINDNESS [None]
  - BLOOD PRESSURE FLUCTUATION [None]
  - DYSSTASIA [None]
  - GAIT DISTURBANCE [None]
  - HAEMORRHAGE [None]
  - HYPERTENSION [None]
